FAERS Safety Report 4514204-0 (Version None)
Quarter: 2004Q4

REPORT INFORMATION
  Report Type: 
  Country: None (occurrence: None)
  Receive Date: 20041124
  Receipt Date: 20041109
  Transmission Date: 20050328
  Serious: Yes (Hospitalization)
  Sender: FDA-Public Use
  Company Number: 430001N04FRA

PATIENT
  Age: 58 Year
  Sex: Female

DRUGS (6)
  1. MITOXANTRONE [Suspect]
     Indication: MULTIPLE SCLEROSIS
     Dosage: 18.84 MG, 1 IN 1 DAYS, INTRAVENOUS
     Route: 042
     Dates: start: 20040928, end: 20040928
  2. BROMAZEPAM [Concomitant]
  3. ESOMEPRAZOLE [Concomitant]
  4. APOREX [Concomitant]
  5. TIANEPTINE [Concomitant]
  6. MACROGOL [Concomitant]

REACTIONS (3)
  - C-REACTIVE PROTEIN INCREASED [None]
  - NEUTROPENIA [None]
  - PYREXIA [None]
